FAERS Safety Report 5519194-X (Version None)
Quarter: 2007Q4

REPORT INFORMATION
  Report Type: 
  Country: None (occurrence: None)
  Receive Date: 20071114
  Receipt Date: 20071105
  Transmission Date: 20080405
  Serious: Yes (Hospitalization)
  Sender: FDA-Public Use
  Company Number: 2007332283

PATIENT
  Age: 46 Year
  Sex: Female

DRUGS (1)
  1. SUDAFED PE SINUS DAY/NIGHT (DAY) (PARACETAMOL, PHENYLEPHRINE) [Suspect]
     Indication: NASOPHARYNGITIS
     Dosage: 2 DAYTIME TABLETS, ORAL
     Route: 048
     Dates: start: 20071002, end: 20071002

REACTIONS (1)
  - ANAPHYLACTIC REACTION [None]
